FAERS Safety Report 10030594 (Version 2)
Quarter: 2014Q1

REPORT INFORMATION
  Report Type: Spontaneous
  Country: US (occurrence: US)
  Receive Date: 20140323
  Receipt Date: 20140323
  Transmission Date: 20141002
  Serious: No
  Sender: FDA-Public Use
  Company Number: US-ALLERGAN-1319182US

PATIENT
  Age: 53 Year
  Sex: Female

DRUGS (5)
  1. LATISSE 0.03% [Suspect]
     Indication: GROWTH OF EYELASHES
     Dosage: 2 GTT, QHS
     Route: 061
     Dates: start: 201310
  2. LATISSE 0.03% [Suspect]
     Dosage: 2 GTT, UNK
     Route: 061
     Dates: start: 201304
  3. ESTROGEN PATCH [Concomitant]
     Indication: PRODUCT USED FOR UNKNOWN INDICATION
     Dosage: UNK
     Route: 062
  4. PROGESTERONE [Concomitant]
     Indication: PRODUCT USED FOR UNKNOWN INDICATION
     Dosage: UNK
  5. OTC EYE MOISTURIZER [Concomitant]
     Indication: DRY EYE
     Dosage: UNK

REACTIONS (3)
  - Inappropriate schedule of drug administration [Unknown]
  - Eye inflammation [Recovered/Resolved]
  - Ocular hyperaemia [Recovered/Resolved]
